FAERS Safety Report 8554856-1 (Version None)
Quarter: 2012Q2

REPORT INFORMATION
  Report Type: 
  Country: None (occurrence: None)
  Receive Date: 20120625
  Receipt Date: 20120625
  Transmission Date: 20120825
  Serious: Yes (Hospitalization)
  Sender: FDA-Public Use
  Company Number: None

PATIENT
  Sex: Male
  Weight: 67.9 kg

DRUGS (8)
  1. METOPROLOL TARTRATE [Concomitant]
  2. ERGOCALCIFEROL [Concomitant]
  3. FLOMAX [Concomitant]
  4. PANTOPRAZOLE [Concomitant]
  5. MIRALAX [Concomitant]
  6. PACLITAXEL [Suspect]
     Dosage: 438 MG
     Dates: end: 20120517
  7. SENNA-MINT WAF [Concomitant]
  8. DOCUSATE [Concomitant]

REACTIONS (1)
  - HYPERCALCAEMIA [None]
